FAERS Safety Report 14609969 (Version 7)
Quarter: 2019Q1

REPORT INFORMATION
  Report Type: Report from Study
  Country: US (occurrence: US)
  Receive Date: 20180307
  Receipt Date: 20190207
  Transmission Date: 20190417
  Serious: Yes (Hospitalization)
  Sender: FDA-Public Use
  Company Number: US-ACTELION-A-NJ2018-166787

PATIENT
  Age: 71 Year
  Sex: Female

DRUGS (3)
  1. OPSUMIT [Suspect]
     Active Substance: MACITENTAN
     Indication: PULMONARY HYPERTENSION
     Dosage: 10 MG, QD
     Route: 048
     Dates: start: 20170720
  2. ANASTROZOLE. [Concomitant]
     Active Substance: ANASTROZOLE
     Dosage: 1 MG, QD
  3. ADCIRCA [Concomitant]
     Active Substance: TADALAFIL

REACTIONS (32)
  - Breast cancer [Not Recovered/Not Resolved]
  - Adverse drug reaction [Recovered/Resolved]
  - Abdominal pain upper [Unknown]
  - Unevaluable event [Unknown]
  - Swelling [Unknown]
  - Dizziness [Unknown]
  - Bone pain [Unknown]
  - Chills [Not Recovered/Not Resolved]
  - Pneumonia [Unknown]
  - Lung infection [Unknown]
  - Biopsy breast [Unknown]
  - Nasopharyngitis [Not Recovered/Not Resolved]
  - Ammonia increased [Unknown]
  - Musculoskeletal pain [Unknown]
  - Vision blurred [Unknown]
  - Sneezing [Unknown]
  - Rhinorrhoea [Unknown]
  - Fall [Unknown]
  - Dyspnoea [Unknown]
  - Confusional state [Unknown]
  - Musculoskeletal discomfort [Unknown]
  - Liver disorder [Unknown]
  - Product dose omission [Unknown]
  - Headache [Unknown]
  - Fatigue [Unknown]
  - Back injury [Unknown]
  - Mobility decreased [Unknown]
  - Face injury [Unknown]
  - Back pain [Unknown]
  - Hypoacusis [Unknown]
  - Peripheral swelling [Unknown]
  - Rash [Unknown]

NARRATIVE: CASE EVENT DATE: 2018
